FAERS Safety Report 19738268 (Version 1)
Quarter: 2021Q3

REPORT INFORMATION
  Report Type: Spontaneous
  Country: US (occurrence: US)
  Receive Date: 20210824
  Receipt Date: 20210824
  Transmission Date: 20211014
  Serious: No
  Sender: FDA-Public Use
  Company Number: NVSC2021US189619

PATIENT
  Sex: Female

DRUGS (5)
  1. ABALOPARATIDE [Suspect]
     Active Substance: ABALOPARATIDE
     Indication: PSORIATIC ARTHROPATHY
  2. COSENTYX [Suspect]
     Active Substance: SECUKINUMAB
     Indication: PRODUCT USED FOR UNKNOWN INDICATION
     Dosage: UNK UNK, UNKNOWN
     Route: 065
  3. ABALOPARATIDE [Suspect]
     Active Substance: ABALOPARATIDE
     Indication: SENILE OSTEOPOROSIS
  4. ABALOPARATIDE [Suspect]
     Active Substance: ABALOPARATIDE
     Indication: ANKYLOSING SPONDYLITIS
     Dosage: 80 MICROGRAM, QD
     Route: 058
     Dates: start: 202104
  5. ABALOPARATIDE [Suspect]
     Active Substance: ABALOPARATIDE
     Indication: PSORIASIS

REACTIONS (2)
  - Condition aggravated [Unknown]
  - Symptom recurrence [Unknown]
